FAERS Safety Report 9551530 (Version 1)
Quarter: 2013Q3

REPORT INFORMATION
  Report Type: Spontaneous
  Country: US (occurrence: None)
  Receive Date: 20130923
  Receipt Date: 20130923
  Transmission Date: 20140515
  Serious: Yes (Hospitalization)
  Sender: FDA-Public Use
  Company Number: None

PATIENT
  Age: 31 Year
  Sex: Male
  Weight: 88.6 kg

DRUGS (1)
  1. SULFAMETHOXAZOLE/TRIMETHOPRIM [Suspect]
     Indication: INFECTION
     Dosage: 800/160 MG
     Route: 048
     Dates: start: 20130911, end: 20130916

REACTIONS (7)
  - Abdominal discomfort [None]
  - Nausea [None]
  - Rash pruritic [None]
  - Cough [None]
  - Vomiting [None]
  - Pain [None]
  - Hypophagia [None]
